FAERS Safety Report 6179606-8 (Version None)
Quarter: 2009Q2

REPORT INFORMATION
  Report Type: 
  Country: None (occurrence: None)
  Receive Date: 20090505
  Receipt Date: 20090331
  Transmission Date: 20091009
  Serious: Yes (Other)
  Sender: FDA-Public Use
  Company Number: US-PFIZER INC-2009195114

PATIENT
  Sex: Female
  Weight: 45.351 kg

DRUGS (4)
  1. CHANTIX [Suspect]
     Indication: SMOKING CESSATION THERAPY
     Dosage: 0.5 MG, 1X/DAY
     Dates: start: 20090329
  2. PREDNISONE [Concomitant]
     Dosage: UNK
  3. LEVAQUIN [Concomitant]
     Dosage: UNK
  4. LISINOPRIL [Concomitant]
     Dosage: UNK

REACTIONS (6)
  - COUGH [None]
  - DEAFNESS [None]
  - EAR DISORDER [None]
  - HYPOPHAGIA [None]
  - MYALGIA [None]
  - STRESS [None]
